FAERS Safety Report 7319453-4 (Version None)
Quarter: 2011Q1

REPORT INFORMATION
  Report Type: 
  Country: None (occurrence: None)
  Receive Date: 20110228
  Receipt Date: 20100331
  Transmission Date: 20110831
  Serious: No
  Sender: FDA-Public Use
  Company Number: A0852902A

PATIENT
  Age: 17 Year
  Sex: Male

DRUGS (2)
  1. DEPAKOTE [Concomitant]
  2. LAMOTRIGINE [Suspect]
     Indication: BIPOLAR DISORDER
     Dosage: 150MG PER DAY
     Route: 048
     Dates: start: 20100101, end: 20100201

REACTIONS (4)
  - DISSOCIATION [None]
  - ANGER [None]
  - DRUG INEFFECTIVE [None]
  - HOSTILITY [None]
